FAERS Safety Report 21038268 (Version 5)
Quarter: 2022Q3

REPORT INFORMATION
  Report Type: Report from Study
  Country: CZ (occurrence: CZ)
  Receive Date: 20220704
  Receipt Date: 20220921
  Transmission Date: 20221027
  Serious: Yes (Death, Hospitalization, Other)
  Sender: FDA-Public Use
  Company Number: CZ-CELLTRION INC.-2022CZ010195

PATIENT

DRUGS (29)
  1. RITUXIMAB [Suspect]
     Active Substance: RITUXIMAB
     Indication: Diffuse large B-cell lymphoma stage IV
     Dosage: REGIMEN 1, 375 MG/M2, EVERY 3 WK
     Route: 042
     Dates: start: 20210420, end: 20210816
  2. DOXORUBICIN [Suspect]
     Active Substance: DOXORUBICIN
     Indication: Diffuse large B-cell lymphoma stage IV
     Dosage: REGIMEN 1, 50 MG/M2, EVERY 3 WK
     Route: 042
     Dates: start: 20210420, end: 20210816
  3. VINCRISTINE [Suspect]
     Active Substance: VINCRISTINE
     Indication: Diffuse large B-cell lymphoma stage IV
     Dosage: REGIMEN 1, 1.4 MG/M2, EVERY 3 WK
     Route: 042
     Dates: start: 20210420, end: 20210816
  4. METHYLPREDNISOLONE [Suspect]
     Active Substance: METHYLPREDNISOLONE
     Indication: Diffuse large B-cell lymphoma stage IV
     Dosage: REGIMEN 1, 80 MG, QD
     Route: 042
     Dates: start: 20210420, end: 20210420
  5. METHYLPREDNISOLONE [Suspect]
     Active Substance: METHYLPREDNISOLONE
     Dosage: REGIMEN 3, 80 MG, QD
     Route: 042
     Dates: start: 20210614, end: 20210614
  6. METHYLPREDNISOLONE [Suspect]
     Active Substance: METHYLPREDNISOLONE
     Dosage: REGIMEN 4, 80 MG, QD
     Route: 042
     Dates: start: 20210726, end: 20210726
  7. METHYLPREDNISOLONE [Suspect]
     Active Substance: METHYLPREDNISOLONE
     Dosage: REGIMEN 5, 80 MG, QD
     Route: 042
     Dates: start: 20210816, end: 20210816
  8. METHYLPREDNISOLONE [Suspect]
     Active Substance: METHYLPREDNISOLONE
     Dosage: REGIMEN 2, 80 MG, QD
     Route: 042
     Dates: start: 20210510, end: 20210510
  9. PREDNISONE [Suspect]
     Active Substance: PREDNISONE
     Indication: Diffuse large B-cell lymphoma stage IV
     Dosage: REGIMEN 1, 100 MG, QD
     Route: 048
     Dates: start: 20210421, end: 20210424
  10. PREDNISONE [Suspect]
     Active Substance: PREDNISONE
     Dosage: REGIMEN 2, 100 MG, QD
     Route: 048
     Dates: start: 20210511, end: 20210514
  11. PREDNISONE [Suspect]
     Active Substance: PREDNISONE
     Dosage: REGIMEN 3, 100 MG, QD
     Route: 048
     Dates: start: 20210615, end: 20210618
  12. PREDNISONE [Suspect]
     Active Substance: PREDNISONE
     Dosage: REGIMEN 4, 100 MG, QD
     Route: 048
     Dates: start: 20210727, end: 20210730
  13. PREDNISONE [Suspect]
     Active Substance: PREDNISONE
     Dosage: REGIMEN 5, 100 MG, QD
     Route: 048
     Dates: start: 20210817, end: 20210820
  14. CYCLOPHOSPHAMIDE [Suspect]
     Active Substance: CYCLOPHOSPHAMIDE
     Indication: Diffuse large B-cell lymphoma stage IV
     Dosage: REGIMEN 1, 750 MG/M2, EVERY 3 WK
     Route: 042
     Dates: start: 20210420, end: 20210816
  15. NOVALGIN (METAMIZOLE SODIUM) [Concomitant]
     Active Substance: METAMIZOLE SODIUM
     Indication: Product used for unknown indication
     Dosage: UNK
     Dates: start: 20210414
  16. AMLODIPINE BESYLATE [Concomitant]
     Active Substance: AMLODIPINE BESYLATE
     Indication: Product used for unknown indication
     Dosage: UNK
     Dates: start: 202006
  17. ZALDIAR [Concomitant]
     Active Substance: ACETAMINOPHEN\TRAMADOL HYDROCHLORIDE
     Indication: Product used for unknown indication
     Dosage: UNK
     Dates: start: 2018
  18. SULFAMETHOXAZOLE\TRIMETHOPRIM [Concomitant]
     Active Substance: SULFAMETHOXAZOLE\TRIMETHOPRIM
     Indication: Product used for unknown indication
     Dosage: UNK
     Route: 065
     Dates: start: 20210414
  19. PREDNISONE [Concomitant]
     Active Substance: PREDNISONE
     Indication: Prophylaxis
     Dosage: 100 MG
     Route: 048
     Dates: start: 20220228, end: 20220228
  20. PREDNISONE [Concomitant]
     Active Substance: PREDNISONE
     Dosage: 100 MG
     Route: 048
     Dates: start: 20210503, end: 20210503
  21. PREDNISONE [Concomitant]
     Active Substance: PREDNISONE
     Dosage: 100 MG
     Route: 048
     Dates: start: 20210427, end: 20210429
  22. BISULEPIN [Concomitant]
     Active Substance: BISULEPIN
     Indication: Premedication
     Dosage: 2 MG
     Route: 048
     Dates: start: 20220228, end: 20220228
  23. ALLOPURINOL [Concomitant]
     Active Substance: ALLOPURINOL
     Indication: Product used for unknown indication
     Dosage: UNK
     Dates: start: 20210414
  24. ALPRAZOLAM [Concomitant]
     Active Substance: ALPRAZOLAM
     Indication: Product used for unknown indication
     Dosage: UNK
     Dates: start: 20210414
  25. PARALEN [PARACETAMOL] [Concomitant]
     Indication: Premedication
     Dosage: 1000 MG
     Route: 048
     Dates: start: 20220228, end: 20220228
  26. GRANISETRON HYDROCHLORIDE [Concomitant]
     Active Substance: GRANISETRON HYDROCHLORIDE
     Indication: Product used for unknown indication
     Dosage: UNK
     Dates: start: 20210420
  27. VALACYCLOVIR HYDROCHLORIDE [Concomitant]
     Active Substance: VALACYCLOVIR HYDROCHLORIDE
     Indication: Product used for unknown indication
     Dosage: UNK
     Dates: start: 20210414
  28. POTASSIUM CHLORIDE [Concomitant]
     Active Substance: POTASSIUM CHLORIDE
     Indication: Product used for unknown indication
     Dosage: UNK
     Dates: start: 20220413
  29. LANSOPRAZOLE [Concomitant]
     Active Substance: LANSOPRAZOLE
     Indication: Product used for unknown indication
     Dosage: UNK
     Dates: start: 2020

REACTIONS (2)
  - COVID-19 pneumonia [Fatal]
  - COVID-19 pneumonia [Recovered/Resolved]

NARRATIVE: CASE EVENT DATE: 20220311
